FAERS Safety Report 15285269 (Version 3)
Quarter: 2018Q3

REPORT INFORMATION
  Report Type: Report from Study
  Country: TW (occurrence: TW)
  Receive Date: 20180816
  Receipt Date: 20180920
  Transmission Date: 20181010
  Serious: Yes (Hospitalization)
  Sender: FDA-Public Use
  Company Number: TW-JNJFOC-20180811380

PATIENT
  Age: 42 Year
  Sex: Male

DRUGS (18)
  1. LONITEN [Concomitant]
     Active Substance: MINOXIDIL
     Route: 048
  2. XYZAL [Concomitant]
     Active Substance: LEVOCETIRIZINE DIHYDROCHLORIDE
     Route: 048
  3. SINPHARDERM [Concomitant]
     Route: 065
  4. DOXABEN [Concomitant]
     Active Substance: DOXAZOSIN MESYLATE
     Route: 048
  5. SIMPONI [Suspect]
     Active Substance: GOLIMUMAB
     Indication: PSORIATIC ARTHROPATHY
     Route: 058
     Dates: start: 20180621
  6. MOBIC [Concomitant]
     Active Substance: MELOXICAM
     Indication: PSORIATIC ARTHROPATHY
     Route: 048
     Dates: start: 20180426
  7. ARHEUMA [Concomitant]
     Indication: PSORIATIC ARTHROPATHY
     Route: 048
     Dates: start: 20171220
  8. WEIMOK [Concomitant]
     Route: 048
  9. ZALAIN [Concomitant]
     Active Substance: SERTACONAZOLE NITRATE
     Route: 065
  10. ZADITEN [Concomitant]
     Active Substance: KETOTIFEN FUMARATE
     Dosage: 0.25 MG/1 ML, 5 ML/BTL
     Route: 065
  11. ACTEIN [Concomitant]
     Route: 048
  12. ULTRACET [Concomitant]
     Active Substance: ACETAMINOPHEN\TRAMADOL HYDROCHLORIDE
     Route: 048
  13. PHYLLOCONTIN [Concomitant]
     Active Substance: AMINOPHYLLINE
     Route: 048
  14. PREDONINE [Concomitant]
     Active Substance: PREDNISOLONE
     Indication: PSORIATIC ARTHROPATHY
     Route: 048
     Dates: start: 20180524
  15. CRAVIT [Concomitant]
     Active Substance: LEVOFLOXACIN
     Route: 048
  16. SPIOLTO RESPIMAT [Concomitant]
     Active Substance: OLODATEROL HYDROCHLORIDE\TIOTROPIUM BROMIDE MONOHYDRATE
     Route: 055
  17. OLMETEC [Concomitant]
     Active Substance: OLMESARTAN MEDOXOMIL
     Route: 048
  18. RIVOTRIL [Concomitant]
     Active Substance: CLONAZEPAM
     Route: 048

REACTIONS (4)
  - Pneumonia [Recovered/Resolved]
  - Gastric ulcer haemorrhage [Unknown]
  - Hepatic steatosis [Unknown]
  - Hiatus hernia [Unknown]

NARRATIVE: CASE EVENT DATE: 20180731
